FAERS Safety Report 18330073 (Version 2)
Quarter: 2020Q4

REPORT INFORMATION
  Report Type: Spontaneous
  Country: US (occurrence: US)
  Receive Date: 20200930
  Receipt Date: 20201106
  Transmission Date: 20210113
  Serious: Yes (Other)
  Sender: FDA-Public Use
  Company Number: US-PFIZER INC-2020270138

PATIENT
  Age: 48 Year
  Sex: Female

DRUGS (1)
  1. XELJANZ XR [Suspect]
     Active Substance: TOFACITINIB CITRATE
     Indication: RHEUMATOID ARTHRITIS
     Dosage: 11 MG, DAILY
     Route: 048
     Dates: start: 201907

REACTIONS (8)
  - Blood glucose increased [Unknown]
  - Peripheral swelling [Unknown]
  - Blood cholesterol increased [Unknown]
  - Exostosis [Unknown]
  - Anxiety [Unknown]
  - Heart rate increased [Unknown]
  - Joint swelling [Unknown]
  - Pain [Unknown]

NARRATIVE: CASE EVENT DATE: 202009
